FAERS Safety Report 16400183 (Version 1)
Quarter: 2019Q2

REPORT INFORMATION
  Report Type: Spontaneous
  Country: US (occurrence: US)
  Receive Date: 20190606
  Receipt Date: 20190606
  Transmission Date: 20190711
  Serious: No
  Sender: FDA-Public Use
  Company Number: US-ALLERGAN-1907712US

PATIENT
  Sex: Male

DRUGS (4)
  1. KYBELLA [Suspect]
     Active Substance: DEOXYCHOLIC ACID
     Dosage: ACTUAL: 0.2 ML, SINGLE (2 VIALS)
     Route: 058
     Dates: start: 20170223, end: 20170223
  2. KYBELLA [Suspect]
     Active Substance: DEOXYCHOLIC ACID
     Dosage: ACTUAL: 0.2 ML, SINGLE (2 VIALS)
     Route: 058
     Dates: start: 20170404, end: 20170404
  3. KYBELLA [Suspect]
     Active Substance: DEOXYCHOLIC ACID
     Indication: FAT TISSUE INCREASED
     Dosage: ACTUAL: 0.2 ML, SINGLE (2 VIALS)
     Route: 058
     Dates: start: 20170411, end: 20170411
  4. KYBELLA [Suspect]
     Active Substance: DEOXYCHOLIC ACID
     Dosage: ACTUAL: 0.2 ML, SINGLE (2 VIALS)
     Route: 058
     Dates: start: 20170103, end: 20170301

REACTIONS (1)
  - Drug ineffective [Unknown]
